FAERS Safety Report 22011129 (Version 1)
Quarter: 2023Q1

REPORT INFORMATION
  Report Type: Spontaneous
  Country: FR (occurrence: FR)
  Receive Date: 20230220
  Receipt Date: 20230220
  Transmission Date: 20230418
  Serious: Yes (Hospitalization)
  Sender: FDA-Public Use
  Company Number: None

PATIENT
  Age: 67 Year
  Sex: Male
  Weight: 82 kg

DRUGS (3)
  1. TEGRETOL [Suspect]
     Active Substance: CARBAMAZEPINE
     Indication: Trigeminal neuralgia
     Dosage: 400 MG, QD
     Route: 048
     Dates: start: 202301, end: 20230119
  2. CODEINE PHOSPHATE\IBUPROFEN [Suspect]
     Active Substance: CODEINE PHOSPHATE\IBUPROFEN
     Indication: Trigeminal neuralgia
     Dosage: 3 DOSAGE FORM, QD
     Route: 048
     Dates: start: 202301, end: 20230119
  3. SUMATRIPTAN SUCCINATE [Suspect]
     Active Substance: SUMATRIPTAN SUCCINATE
     Indication: Trigeminal neuralgia
     Dosage: UNK
     Route: 045
     Dates: start: 202301, end: 20230119

REACTIONS (1)
  - Posterior reversible encephalopathy syndrome [Recovering/Resolving]

NARRATIVE: CASE EVENT DATE: 20230119
